FAERS Safety Report 16813243 (Version 1)
Quarter: 2019Q3

REPORT INFORMATION
  Report Type: Spontaneous
  Country: US (occurrence: US)
  Receive Date: 20190916
  Receipt Date: 20190916
  Transmission Date: 20191005
  Serious: Yes (Hospitalization, Other)
  Sender: FDA-Public Use
  Company Number: PHEH2019US037501

PATIENT
  Age: 72 Year
  Sex: Female
  Weight: 82.55 kg

DRUGS (2)
  1. RECLAST [Suspect]
     Active Substance: ZOLEDRONIC ACID
     Indication: OSTEOPOROSIS
     Dosage: 5 MG, ONCE/SINGLE
     Route: 042
     Dates: start: 20190826, end: 20190826
  2. RECLAST [Suspect]
     Active Substance: ZOLEDRONIC ACID
     Indication: BONE LOSS

REACTIONS (10)
  - Dizziness [Unknown]
  - Hypophosphataemia [Unknown]
  - Pain [Unknown]
  - Dyspnoea [Unknown]
  - Muscle spasms [Unknown]
  - Feeling abnormal [Recovering/Resolving]
  - Tinnitus [Unknown]
  - Blood calcium decreased [Unknown]
  - Blood pressure increased [Unknown]
  - Bone pain [Unknown]

NARRATIVE: CASE EVENT DATE: 20190827
